FAERS Safety Report 8401600-4 (Version None)
Quarter: 2012Q2

REPORT INFORMATION
  Report Type: 
  Country: None (occurrence: None)
  Receive Date: 20120529
  Receipt Date: 19910716
  Transmission Date: 20120825
  Serious: Yes (Other)
  Sender: FDA-Public Use
  Company Number: 003885

PATIENT
  Age: 43 Year
  Sex: Female

DRUGS (7)
  1. MIDODRINE HYDROCHLORIDE (MIDODRINE HYDROCHLORIDE) [Concomitant]
  2. PLETAL [Suspect]
     Dosage: 200 MG, DAILY DOSE, ORAL
     Route: 048
     Dates: start: 19910325, end: 19910522
  3. PRECIPITATED CALCIUM CARBONATE (PRECIPITATED CALCIUM CARBONATE) [Concomitant]
  4. ELASTASE (ELASTASE) [Concomitant]
  5. CALCITRIOL [Concomitant]
  6. DIPYRIDAMOLE [Concomitant]
  7. FERROUS FUMARATE [Concomitant]

REACTIONS (9)
  - INSOMNIA [None]
  - IODINE ALLERGY [None]
  - APLASTIC ANAEMIA [None]
  - HYPERSENSITIVITY [None]
  - PYREXIA [None]
  - PANCYTOPENIA [None]
  - MYALGIA [None]
  - INJECTION SITE HAEMATOMA [None]
  - STOMATITIS [None]
